FAERS Safety Report 24406789 (Version 1)
Quarter: 2024Q4

REPORT INFORMATION
  Report Type: Spontaneous
  Country: GB (occurrence: GB)
  Receive Date: 20241007
  Receipt Date: 20241007
  Transmission Date: 20250114
  Serious: Yes (Other)
  Sender: SANDOZ
  Company Number: None

PATIENT
  Age: 29 Year
  Sex: Female
  Weight: 113 kg

DRUGS (5)
  1. METHOTREXATE [Suspect]
     Active Substance: METHOTREXATE
     Indication: Ill-defined disorder
     Dosage: 2.5 MG
     Route: 065
     Dates: start: 20240823
  2. CODEINE PHOSPHATE [Concomitant]
     Active Substance: CODEINE PHOSPHATE
     Indication: Ill-defined disorder
     Dosage: TAKE 1-2 TO BE TAKEN FOUR TIMES DAILY WHEN REQU...
     Route: 065
     Dates: start: 20240709, end: 20240716
  3. CHLORHEXIDINE GLUCONATE [Concomitant]
     Active Substance: CHLORHEXIDINE GLUCONATE
     Indication: Ill-defined disorder
     Dosage: USE AS DIRECTED
     Route: 065
     Dates: start: 20240902, end: 20240903
  4. MEFENAMIC ACID [Concomitant]
     Active Substance: MEFENAMIC ACID
     Indication: Ill-defined disorder
     Dosage: TAKE TWO 3 TIMES/DAY FOR 7-10 DAYS
     Route: 065
     Dates: start: 20240914, end: 20240928
  5. Zeroveen [Concomitant]
     Indication: Ill-defined disorder
     Dosage: USE AS DIRECTED
     Route: 065
     Dates: start: 20230318

REACTIONS (2)
  - Heavy menstrual bleeding [Recovered/Resolved]
  - Folliculitis [Recovered/Resolved]

NARRATIVE: CASE EVENT DATE: 20240823
